FAERS Safety Report 20416152 (Version 1)
Quarter: 2022Q1

REPORT INFORMATION
  Report Type: Spontaneous
  Country: US (occurrence: None)
  Receive Date: 20220201
  Receipt Date: 20220201
  Transmission Date: 20220423
  Serious: No
  Sender: FDA-Public Use
  Company Number: None

PATIENT
  Age: 80 Year
  Sex: Female
  Weight: 78.93 kg

DRUGS (1)
  1. BOTOX [Suspect]
     Active Substance: ONABOTULINUMTOXINA
     Indication: Rheumatoid arthritis
     Dosage: 200 UNITS;  TO CERVICAL AREA EVERY 3 MONTHS FOR CERVIAL DYSTONIA?
     Dates: start: 202008

REACTIONS (1)
  - Cellulitis [None]
